FAERS Safety Report 8760166 (Version 2)
Quarter: 2012Q4

REPORT INFORMATION
  Report Type: Report from Study
  Country: DE (occurrence: DE)
  Receive Date: 20120829
  Receipt Date: 20121019
  Transmission Date: 20130627
  Serious: Yes (Hospitalization)
  Sender: FDA-Public Use
  Company Number: DE-ROCHE-1106657

PATIENT
  Age: 69 Year
  Sex: Female
  Weight: 56 kg

DRUGS (6)
  1. BEVACIZUMAB [Suspect]
     Indication: COLON CANCER
     Dosage: stopped till 15/Oct/2012.
     Route: 042
     Dates: start: 20111128
  2. 5-FU [Concomitant]
     Indication: COLON CANCER
     Dosage: stopped till 15/Oct/2012.
     Route: 042
     Dates: start: 20111128
  3. 5-FU [Concomitant]
     Route: 065
     Dates: start: 201110
  4. FOLINIC ACID [Concomitant]
     Indication: COLON CANCER
     Dosage: stopped till 15/Oct/2012.
     Route: 042
     Dates: start: 20111128
  5. FOLINIC ACID [Concomitant]
     Route: 065
     Dates: start: 201110
  6. IRINOTECAN [Concomitant]
     Indication: COLON CANCER
     Dosage: stopped till 15/Oct/2012.
     Route: 042
     Dates: start: 20111128

REACTIONS (4)
  - Abdominal pain upper [Recovered/Resolved]
  - Cholelithiasis [Recovered/Resolved]
  - Bile duct stone [Recovered/Resolved]
  - Cholecystitis acute [Recovered/Resolved]
